FAERS Safety Report 6773482-8 (Version None)
Quarter: 2010Q2

REPORT INFORMATION
  Report Type: 
  Country: None (occurrence: None)
  Receive Date: 20100616
  Receipt Date: 20100520
  Transmission Date: 20101027
  Serious: No
  Sender: FDA-Public Use
  Company Number: US-ABBOTT-10P-163-0647110-00

PATIENT
  Age: 67 Year
  Sex: Female

DRUGS (6)
  1. TRILIPIX [Suspect]
     Indication: BLOOD TRIGLYCERIDES INCREASED
     Dates: start: 20100101, end: 20100408
  2. HYDROCHLOROTHIAZIDE [Concomitant]
     Indication: HYPERTENSION
  3. WELLBUTRIN [Concomitant]
     Indication: DEPRESSION
     Dosage: DAILY
     Dates: start: 20100408
  4. WELLBUTRIN [Concomitant]
     Dosage: DAILY
  5. ABILIFY [Concomitant]
     Indication: DEPRESSION
     Dates: start: 20100408
  6. ABILIFY [Concomitant]
     Dosage: DAILY

REACTIONS (1)
  - DEPRESSION [None]
